FAERS Safety Report 5622769-0 (Version None)
Quarter: 2008Q1

REPORT INFORMATION
  Report Type: 
  Country: None (occurrence: None)
  Receive Date: 20080212
  Receipt Date: 20080207
  Transmission Date: 20080703
  Serious: Yes (Other)
  Sender: FDA-Public Use
  Company Number: JP-BOEHRINGER INGELHEIM GMBH, GERMANY-2007-BP-26888NB

PATIENT
  Sex: Female
  Weight: 44 kg

DRUGS (6)
  1. BI-SIFROL TABLETS [Suspect]
     Indication: PARKINSON'S DISEASE
     Route: 048
     Dates: start: 20070627, end: 20070806
  2. CARBIDOPA AND LEVODOPA [Concomitant]
     Indication: PARKINSON'S DISEASE
     Route: 048
     Dates: start: 20060110
  3. LENDORMIN [Concomitant]
     Indication: INSOMNIA
     Route: 048
     Dates: start: 20060110
  4. SELBEX [Concomitant]
     Indication: GASTRITIS
     Route: 048
     Dates: start: 20060110
  5. METHYCOBAL (MECOBALAMIN) [Concomitant]
     Indication: NEUROPATHY PERIPHERAL
     Route: 048
     Dates: start: 20060110
  6. CABERGOLINE [Concomitant]
     Route: 048
     Dates: start: 20070710

REACTIONS (1)
  - SUDDEN ONSET OF SLEEP [None]
